FAERS Safety Report 10185064 (Version 2)
Quarter: 2014Q2

REPORT INFORMATION
  Report Type: Report from Study
  Country: IL (occurrence: IL)
  Receive Date: 20140521
  Receipt Date: 20140623
  Transmission Date: 20141212
  Serious: Yes (Life-Threatening, Other)
  Sender: FDA-Public Use
  Company Number: IL-ALEXION PHARMACEUTICALS INC.-A201401869

PATIENT
  Sex: 0

DRUGS (9)
  1. ECULIZUMAB [Suspect]
     Indication: HAEMOLYTIC URAEMIC SYNDROME
     Dosage: UNK
     Route: 042
     Dates: start: 20130507
  2. ECULIZUMAB [Suspect]
     Dosage: 600 MG, UNK
     Route: 042
     Dates: start: 20130921
  3. CELLCEPT                           /01275102/ [Suspect]
     Indication: KIDNEY TRANSPLANT REJECTION
     Route: 065
  4. DISEPTYL [Suspect]
     Indication: PROPHYLAXIS
     Route: 065
  5. TACROLIMUS [Concomitant]
     Indication: KIDNEY TRANSPLANT REJECTION
     Route: 065
  6. PREDNISONE [Concomitant]
     Indication: KIDNEY TRANSPLANT REJECTION
     Dosage: UNK
     Route: 065
  7. ATENOLOL [Concomitant]
     Indication: HYPERTENSION
     Route: 065
  8. AMLODIPINE [Concomitant]
     Indication: HYPERTENSION
     Route: 065
  9. AMOXICILLIN [Concomitant]
     Indication: PROPHYLAXIS
     Dosage: UNK
     Route: 065

REACTIONS (3)
  - Neutropenia [Recovered/Resolved]
  - Lymphopenia [Recovered/Resolved]
  - Leukopenia [Recovered/Resolved]
